FAERS Safety Report 23826844 (Version 1)
Quarter: 2024Q2

REPORT INFORMATION
  Report Type: Spontaneous
  Country: US (occurrence: US)
  Receive Date: 20240507
  Receipt Date: 20240507
  Transmission Date: 20240715
  Serious: Yes (Other)
  Sender: FDA-Public Use
  Company Number: US-PFIZER INC-202400100055

PATIENT
  Age: 56 Year
  Sex: Male

DRUGS (2)
  1. INLYTA [Suspect]
     Active Substance: AXITINIB
     Dosage: 5 MG EVERY 12 HOURS
     Route: 048
     Dates: start: 20240206, end: 20240409
  2. INLYTA [Suspect]
     Active Substance: AXITINIB
     Dosage: 5 MG EVERY 12 HOURS
     Route: 048
     Dates: start: 2024

REACTIONS (8)
  - Hypertension [Recovering/Resolving]
  - Rash [Recovering/Resolving]
  - Blister [Recovering/Resolving]
  - Skin lesion [Recovering/Resolving]
  - Gait inability [Unknown]
  - Impaired healing [Recovering/Resolving]
  - Oropharyngeal pain [Unknown]
  - Ear discomfort [Unknown]
